FAERS Safety Report 12624621 (Version 6)
Quarter: 2018Q1

REPORT INFORMATION
  Report Type: Report from Study
  Country: DE (occurrence: DE)
  Receive Date: 20160805
  Receipt Date: 20180209
  Transmission Date: 20180508
  Serious: Yes (Hospitalization)
  Sender: FDA-Public Use
  Company Number: DE-ROCHE-1807668

PATIENT
  Age: 79 Year
  Sex: Male
  Weight: 82 kg

DRUGS (27)
  1. ATEZOLIZUMAB. [Suspect]
     Active Substance: ATEZOLIZUMAB
     Indication: NON-SMALL CELL LUNG CANCER STAGE IV
     Dosage: MOST RECENT DOSE ADMINISTERED ON 26/JUL/2016, PRIOR TO THE EVENT
     Route: 042
     Dates: start: 20160614
  2. RINGERS SOLUTION [Concomitant]
     Active Substance: CALCIUM CHLORIDE\POTASSIUM CHLORIDE\SODIUM CHLORIDE
     Indication: INTESTINAL HAEMORRHAGE
     Route: 065
     Dates: start: 20160614
  3. CLEMASTIN [Concomitant]
     Active Substance: CLEMASTINE
     Route: 065
     Dates: start: 20160614, end: 20160816
  4. GRANISETRON [Concomitant]
     Active Substance: GRANISETRON
     Route: 065
     Dates: start: 20160614, end: 20160816
  5. HEPARIN [Concomitant]
     Active Substance: HEPARIN SODIUM
     Indication: RENAL FAILURE
     Route: 065
     Dates: start: 20160801
  6. BEVACIZUMAB. [Suspect]
     Active Substance: BEVACIZUMAB
     Indication: NON-SMALL CELL LUNG CANCER STAGE IV
     Dosage: MOST RECENT DOSE (1200 MG) ADMINISTERED ON 26/JUL/2016, PRIOR TO THE EVENT
     Route: 042
     Dates: start: 20160614
  7. CELIPROLOL [Concomitant]
     Active Substance: CELIPROLOL
     Indication: HYPERTENSION
     Route: 065
     Dates: start: 2011
  8. HYDROCHLOROTHIAZIDE. [Concomitant]
     Active Substance: HYDROCHLOROTHIAZIDE
     Indication: HYPERTENSION
     Route: 065
     Dates: start: 2014
  9. NOVALGIN (METAMIZOLE SODIUM) [Concomitant]
     Active Substance: METAMIZOLE SODIUM
     Indication: BACK PAIN
     Route: 065
     Dates: start: 20160621
  10. DEXAMETHASONE. [Concomitant]
     Active Substance: DEXAMETHASONE
     Route: 065
     Dates: start: 20160614
  11. CARBOPLATIN. [Suspect]
     Active Substance: CARBOPLATIN
     Indication: NON-SMALL CELL LUNG CANCER STAGE IV
     Dosage: TARGET AUC = 6 MG/ML/MIN?MOST RECENT DOSE (397 MG) ADMINISTERED ON 26/JUL/2016, PRIOR TO THE EVENT
     Route: 042
     Dates: start: 20160614
  12. METOCLOPRAMIDE. [Concomitant]
     Active Substance: METOCLOPRAMIDE
     Indication: DIARRHOEA
     Route: 065
     Dates: start: 20160620
  13. KALINOR BRAUSE [Concomitant]
     Indication: HYPOKALAEMIA
     Route: 065
     Dates: start: 20160622
  14. RINGERS SOLUTION [Concomitant]
     Active Substance: CALCIUM CHLORIDE\POTASSIUM CHLORIDE\SODIUM CHLORIDE
     Route: 065
     Dates: start: 20160801, end: 20160808
  15. TAZOBAC [Concomitant]
     Active Substance: PIPERACILLIN SODIUM\TAZOBACTAM SODIUM
     Route: 065
     Dates: start: 20160803, end: 20160808
  16. TRAMAL [Concomitant]
     Active Substance: TRAMADOL
     Indication: BACK PAIN
     Route: 065
     Dates: start: 20160613
  17. CARMEN (GERMANY) [Concomitant]
     Active Substance: LERCANIDIPINE HYDROCHLORIDE
     Indication: HYPERTENSION
     Route: 065
     Dates: start: 20160620
  18. TAVANIC [Concomitant]
     Active Substance: LEVOFLOXACIN
     Indication: C-REACTIVE PROTEIN INCREASED
     Route: 065
     Dates: start: 20160802, end: 20160808
  19. TELMISARTAN. [Concomitant]
     Active Substance: TELMISARTAN
     Indication: HYPERTENSION
     Route: 065
     Dates: start: 2014
  20. ALLOPURINOL. [Concomitant]
     Active Substance: ALLOPURINOL
     Indication: GOUT
     Route: 065
     Dates: start: 1957, end: 20160802
  21. RINGERS SOLUTION [Concomitant]
     Active Substance: CALCIUM CHLORIDE\POTASSIUM CHLORIDE\SODIUM CHLORIDE
     Route: 065
     Dates: start: 20160710, end: 20160712
  22. GUTRON [Concomitant]
     Active Substance: MIDODRINE
     Indication: HYPOTONIA
     Route: 065
     Dates: start: 20160803
  23. AMLODIN [Concomitant]
     Active Substance: AMLODIPINE BESYLATE
     Indication: HYPERTENSION
     Route: 065
     Dates: start: 20160620
  24. PACLITAXEL. [Suspect]
     Active Substance: PACLITAXEL
     Indication: NON-SMALL CELL LUNG CANCER STAGE IV
     Dosage: MOST RECENT DOSE (291 MG) ADMINISTERED ON 26/JUL/2016, PRIOR TO THE EVENT
     Route: 042
     Dates: start: 20160614
  25. IMODIUM [Concomitant]
     Active Substance: LOPERAMIDE HYDROCHLORIDE
     Indication: DIARRHOEA
     Route: 065
     Dates: start: 20160620
  26. RANITIDINE. [Concomitant]
     Active Substance: RANITIDINE
     Route: 065
     Dates: start: 20160614, end: 20160816
  27. PANTOZOL [Concomitant]
     Active Substance: PANTOPRAZOLE SODIUM
     Indication: GASTRITIS
     Route: 065
     Dates: start: 201605

REACTIONS (1)
  - Syncope [Recovered/Resolved]

NARRATIVE: CASE EVENT DATE: 20160801
